FAERS Safety Report 17264273 (Version 1)
Quarter: 2020Q1

REPORT INFORMATION
  Report Type: Report from Study
  Country: US (occurrence: US)
  Receive Date: 20200113
  Receipt Date: 20200113
  Transmission Date: 20200409
  Serious: Yes (Death, Hospitalization)
  Sender: FDA-Public Use
  Company Number: US-TAKEDA-2018TUS003718

PATIENT
  Age: 80 Year
  Sex: Female

DRUGS (5)
  1. IRON [Suspect]
     Active Substance: IRON
     Indication: PRODUCT USED FOR UNKNOWN INDICATION
     Dosage: UNK, BID
     Route: 048
     Dates: start: 201908
  2. IMBRUVICA [Concomitant]
     Active Substance: IBRUTINIB
     Dosage: UNK
     Route: 065
  3. PONATINIB [Suspect]
     Active Substance: PONATINIB
     Dosage: 15 MILLIGRAM, QD
     Route: 048
     Dates: start: 2016
  4. PONATINIB [Suspect]
     Active Substance: PONATINIB
     Indication: CHRONIC MYELOID LEUKAEMIA
     Dosage: 30 MILLIGRAM, QD
     Route: 048
     Dates: start: 201501
  5. PONATINIB [Suspect]
     Active Substance: PONATINIB
     Dosage: 30 MILLIGRAM, QD
     Route: 048

REACTIONS (9)
  - Death [Fatal]
  - Constipation [Not Recovered/Not Resolved]
  - Pneumonia [Unknown]
  - Cystitis [Unknown]
  - Nausea [Recovered/Resolved]
  - Nasopharyngitis [Unknown]
  - Vomiting [Recovered/Resolved]
  - Influenza [Unknown]
  - Product dose omission [Unknown]

NARRATIVE: CASE EVENT DATE: 20190902
